FAERS Safety Report 5806930-8 (Version None)
Quarter: 2008Q3

REPORT INFORMATION
  Report Type: 
  Country: None (occurrence: None)
  Receive Date: 20080711
  Receipt Date: 20080702
  Transmission Date: 20090109
  Serious: Yes (Hospitalization)
  Sender: FDA-Public Use
  Company Number: US-JNJFOC-20080701330

PATIENT
  Sex: Male
  Weight: 104.33 kg

DRUGS (4)
  1. RISPERDAL CONSTA [Suspect]
     Indication: SCHIZOPHRENIA
     Route: 030
  2. AMBIEN [Concomitant]
     Indication: SLEEP DISORDER THERAPY
     Dosage: AS NEEDED
  3. ADDERALL XR 10 [Concomitant]
     Indication: DRUG USE FOR UNKNOWN INDICATION
  4. LEXAPRO [Concomitant]
     Indication: DEPRESSION

REACTIONS (5)
  - DRUG SCREEN POSITIVE [None]
  - EXERCISE LACK OF [None]
  - FATIGUE [None]
  - RASH [None]
  - WEIGHT INCREASED [None]
